FAERS Safety Report 6030028-X (Version None)
Quarter: 2009Q1

REPORT INFORMATION
  Report Type: 
  Country: None (occurrence: None)
  Receive Date: 20090105
  Receipt Date: 20090105
  Transmission Date: 20090719
  Serious: Yes (Hospitalization)
  Sender: FDA-Public Use
  Company Number: None

PATIENT
  Age: 63 Year
  Sex: Female
  Weight: 90.7194 kg

DRUGS (3)
  1. ACTIVASE [Suspect]
     Indication: ISCHAEMIC STROKE
     Dosage: 8ML STAT IV BOLUS 79ML OVER 1 HOUR IV DRIP
     Route: 040
     Dates: start: 20081219, end: 20081219
  2. BENADRYL [Concomitant]
  3. SOLU-MEDROL [Concomitant]

REACTIONS (2)
  - SWOLLEN TONGUE [None]
  - URTICARIA [None]
